FAERS Safety Report 23386705 (Version 1)
Quarter: 2024Q1

REPORT INFORMATION
  Report Type: Spontaneous
  Country: US (occurrence: US)
  Receive Date: 20240110
  Receipt Date: 20240110
  Transmission Date: 20240410
  Serious: No
  Sender: FDA-Public Use
  Company Number: US-CATALYST PHARMACEUTICALS, INC-US-CATA-23-00062

PATIENT
  Sex: Female

DRUGS (2)
  1. FIRDAPSE [Suspect]
     Active Substance: AMIFAMPRIDINE PHOSPHATE
     Indication: Myasthenic syndrome
     Dosage: 1/2 TABLET 3 TIMES DAILY FOR 4 DAYS, INCREASING BY 5 MG EVERY 4 DAYS UNTIL SHE WAS TAKING 2 TABLETS
     Route: 065
     Dates: start: 20210819
  2. FIRDAPSE [Suspect]
     Active Substance: AMIFAMPRIDINE PHOSPHATE
     Dosage: 2 DOSAGE FORM, QID
     Route: 048

REACTIONS (1)
  - Drug ineffective [Unknown]
